FAERS Safety Report 17173092 (Version 6)
Quarter: 2022Q1

REPORT INFORMATION
  Report Type: Spontaneous
  Country: CN (occurrence: CN)
  Receive Date: 20191219
  Receipt Date: 20220103
  Transmission Date: 20220423
  Serious: Yes (Hospitalization)
  Sender: FDA-Public Use
  Company Number: CN-CELGENE-CHN-20191206248

PATIENT
  Age: 56 Year
  Sex: Male
  Weight: 69 kg

DRUGS (7)
  1. ABRAXANE [Suspect]
     Active Substance: PACLITAXEL
     Indication: Lung squamous cell carcinoma stage III
     Dosage: 181.8 MILLIGRAM
     Route: 041
     Dates: start: 20191119, end: 20191210
  2. ABRAXANE [Suspect]
     Active Substance: PACLITAXEL
     Dosage: 181.8 MILLIGRAM
     Route: 041
     Dates: start: 20191224
  3. SERPLULIMAB [Suspect]
     Active Substance: SERPLULIMAB
     Indication: Lung squamous cell carcinoma stage III
     Route: 041
     Dates: start: 20191119, end: 20191210
  4. SERPLULIMAB [Suspect]
     Active Substance: SERPLULIMAB
     Route: 041
     Dates: start: 20191224
  5. CARBOPLATIN [Suspect]
     Active Substance: CARBOPLATIN
     Indication: Lung squamous cell carcinoma stage III
     Route: 041
     Dates: start: 20191119, end: 20191210
  6. CARBOPLATIN [Suspect]
     Active Substance: CARBOPLATIN
     Route: 041
     Dates: start: 20191224
  7. TROPISETRON HYDROCHLORIDE [Concomitant]
     Active Substance: TROPISETRON HYDROCHLORIDE
     Indication: Antiemetic supportive care
     Dosage: 5 MILLIGRAM
     Route: 041
     Dates: start: 20191203, end: 20191203

REACTIONS (1)
  - Arrhythmia [Recovered/Resolved]

NARRATIVE: CASE EVENT DATE: 20191210
